FAERS Safety Report 18777833 (Version 1)
Quarter: 2021Q1

REPORT INFORMATION
  Report Type: Spontaneous
  Country: US (occurrence: US)
  Receive Date: 20210122
  Receipt Date: 20210122
  Transmission Date: 20210419
  Serious: No
  Sender: FDA-Public Use
  Company Number: 2020SGN04167

PATIENT
  Sex: Female

DRUGS (2)
  1. XELODA [Suspect]
     Active Substance: CAPECITABINE
     Indication: BREAST CANCER FEMALE
     Dosage: UNK
  2. TUKYSA [Suspect]
     Active Substance: TUCATINIB
     Indication: BREAST CANCER FEMALE
     Dosage: UNK
     Route: 065
     Dates: end: 202010

REACTIONS (6)
  - Therapeutic product effect incomplete [Unknown]
  - Erythema [Unknown]
  - Nausea [Recovering/Resolving]
  - Diarrhoea [Unknown]
  - Skin fissures [Unknown]
  - Unevaluable event [Unknown]
